FAERS Safety Report 24295066 (Version 1)
Quarter: 2024Q3

REPORT INFORMATION
  Report Type: Spontaneous
  Country: SE (occurrence: SE)
  Receive Date: 20240907
  Receipt Date: 20240907
  Transmission Date: 20241017
  Serious: Yes (Other)
  Sender: CELLTRION
  Company Number: SE-CELLTRION INC.-2023SE014975

PATIENT

DRUGS (3)
  1. INFLIXIMAB [Suspect]
     Active Substance: INFLIXIMAB
     Indication: Product used for unknown indication
     Dosage: 10 MG/KG,1 IN 7 WK, PATIENT ONLY RECEIVED ONE DOSE DUE TO AN ALLERGIC REACTION.
     Route: 065
     Dates: start: 20230320
  2. INFLIXIMAB [Suspect]
     Active Substance: INFLIXIMAB
     Dosage: ONE DOSE (10 MG/KG,1 IN 7 WK), PATIENT ONLY RECEIVED ONE DOSE DUE TO AN ALLERGIC REACTION.
     Route: 065
     Dates: start: 20230320
  3. METHOTREXATE [Suspect]
     Active Substance: METHOTREXATE
     Indication: Product used for unknown indication
     Dosage: UNK
     Dates: start: 202312

REACTIONS (6)
  - Severe cutaneous adverse reaction [Not Recovered/Not Resolved]
  - Rash [Not Recovered/Not Resolved]
  - Hypersensitivity [Not Recovered/Not Resolved]
  - Product complaint [Unknown]
  - Product substitution issue [Unknown]
  - Drug ineffective [Unknown]

NARRATIVE: CASE EVENT DATE: 20230403
